FAERS Safety Report 9801886 (Version 1)
Quarter: 2014Q1

REPORT INFORMATION
  Report Type: Spontaneous
  Country: US (occurrence: US)
  Receive Date: 20140107
  Receipt Date: 20140107
  Transmission Date: 20141002
  Serious: No
  Sender: FDA-Public Use
  Company Number: US-ALLERGAN-1300334US

PATIENT
  Age: 32 Year
  Sex: Female

DRUGS (4)
  1. ACZONE [Suspect]
     Indication: ACNE
     Dosage: UNK UNK, BID
     Route: 061
     Dates: start: 20130103, end: 20130104
  2. DEXILANT [Concomitant]
     Indication: GASTROOESOPHAGEAL REFLUX DISEASE
     Dosage: UNK
  3. HYSOCYAMINE [Concomitant]
     Indication: GASTROOESOPHAGEAL REFLUX DISEASE
     Dosage: UNK
  4. TRETINEX [Concomitant]
     Indication: ACNE
     Dosage: 3 TIMES PER WEEK
     Route: 061

REACTIONS (1)
  - Methaemoglobinaemia [Recovered/Resolved]
